FAERS Safety Report 7153581-1 (Version None)
Quarter: 2010Q4

REPORT INFORMATION
  Report Type: 
  Country: None (occurrence: None)
  Receive Date: 20101213
  Receipt Date: 20101208
  Transmission Date: 20110411
  Serious: Yes (Hospitalization)
  Sender: FDA-Public Use
  Company Number: US-BRISTOL-MYERS SQUIBB COMPANY-15411242

PATIENT
  Age: 78 Year
  Sex: Female
  Weight: 79 kg

DRUGS (12)
  1. ORENCIA [Suspect]
     Dosage: 2 TREATMENTS ONE ON 22OCT2010 AND 05NOV2014
     Route: 042
     Dates: start: 20101022
  2. PREDNISONE [Suspect]
  3. METHOTREXATE [Suspect]
     Route: 048
  4. RECLAST [Suspect]
     Route: 042
     Dates: start: 20090601
  5. CALCIUM [Concomitant]
  6. HYDROCHLOROTHIAZIDE [Concomitant]
  7. TOPROL-XL [Concomitant]
     Dosage: 1 DF:25 UNIT NOS
  8. NORVASC [Concomitant]
  9. ALLEGRA [Concomitant]
  10. ADVAIR DISKUS 100/50 [Concomitant]
     Route: 055
  11. PEPCID [Concomitant]
  12. HYDROCHLOROTHIAZIDE [Concomitant]
     Dosage: 1 DF:75 UNIT NOS

REACTIONS (2)
  - FALL [None]
  - HIP FRACTURE [None]
